FAERS Safety Report 5760962-7 (Version None)
Quarter: 2008Q2

REPORT INFORMATION
  Report Type: 
  Country: None (occurrence: None)
  Receive Date: 20080606
  Receipt Date: 20070329
  Transmission Date: 20081010
  Serious: No
  Sender: FDA-Public Use
  Company Number: US-ASTRAZENECA-2007UW06429

PATIENT
  Age: 62 Year
  Sex: Female

DRUGS (8)
  1. PRILOSEC [Suspect]
     Indication: GASTROOESOPHAGEAL REFLUX DISEASE
     Route: 048
  2. ATENOLOL [Concomitant]
  3. HYDROCHLOROTHIAZIDE [Concomitant]
  4. NEXIUM [Concomitant]
     Route: 048
  5. PREVACID [Concomitant]
  6. TAGAMET [Concomitant]
  7. ZANTAC [Concomitant]
  8. ARISTOCORT NASAL SPRAY [Concomitant]

REACTIONS (4)
  - CONSTIPATION [None]
  - GASTROINTESTINAL SOUNDS ABNORMAL [None]
  - ILL-DEFINED DISORDER [None]
  - THERAPEUTIC RESPONSE DECREASED [None]
